FAERS Safety Report 6946072-1 (Version None)
Quarter: 2010Q3

REPORT INFORMATION
  Report Type: 
  Country: None (occurrence: None)
  Receive Date: 20100824
  Receipt Date: 20100809
  Transmission Date: 20110219
  Serious: Yes (Hospitalization)
  Sender: FDA-Public Use
  Company Number: 8046465

PATIENT
  Sex: Male
  Weight: 66 kg

DRUGS (7)
  1. CERTOLIZUMAB PEGOL (CERTOLIZUMAB PEGOL) [Suspect]
     Indication: RHEUMATOID ARTHRITIS
     Dosage: SUBCUTANEOUS
     Route: 058
     Dates: start: 20090205, end: 20090430
  2. CERTOLIZUMAB PEGOL (CERTOLIZUMAB PEGOL) [Suspect]
     Indication: RHEUMATOID ARTHRITIS
     Dosage: SUBCUTANEOUS
     Route: 058
     Dates: start: 20090527, end: 20090805
  3. PREDNISOLONE [Concomitant]
  4. SULFASALAZINE [Concomitant]
  5. ROXATIDINE ACETATE HCL [Concomitant]
  6. LOXOPROFEN SODIUM [Concomitant]
  7. KETOPROFEN [Concomitant]

REACTIONS (1)
  - HERPES ZOSTER [None]
